FAERS Safety Report 16327099 (Version 2)
Quarter: 2019Q4

REPORT INFORMATION
  Report Type: Report from Study
  Country: US (occurrence: US)
  Receive Date: 20190517
  Receipt Date: 20191014
  Transmission Date: 20200122
  Serious: No
  Sender: FDA-Public Use
  Company Number: US-SA-2019SA134466

PATIENT
  Age: 63 Year
  Sex: Female

DRUGS (2)
  1. DUPILUMAB [Suspect]
     Active Substance: DUPILUMAB
     Indication: DERMATITIS ATOPIC
     Dosage: 600 MG, 1X
     Route: 058
     Dates: start: 2019, end: 2019
  2. DUPILUMAB [Suspect]
     Active Substance: DUPILUMAB
     Dosage: 300 MG, QOW
     Route: 058
     Dates: start: 20190423

REACTIONS (5)
  - Rash pruritic [Unknown]
  - Dry mouth [Unknown]
  - Oral herpes [Unknown]
  - Aphthous ulcer [Unknown]
  - Hordeolum [Unknown]

NARRATIVE: CASE EVENT DATE: 201908
